FAERS Safety Report 10475366 (Version 2)
Quarter: 2014Q3

REPORT INFORMATION
  Report Type: Spontaneous
  Country: CN (occurrence: CN)
  Receive Date: 20140925
  Receipt Date: 20140925
  Transmission Date: 20150326
  Serious: Yes (Hospitalization)
  Sender: FDA-Public Use
  Company Number: CN-ASTRAZENECA-2014SE45120

PATIENT
  Age: 64 Year
  Sex: Male

DRUGS (7)
  1. CASODEX [Suspect]
     Active Substance: BICALUTAMIDE
     Indication: METASTASIS
     Route: 048
     Dates: start: 201405
  2. ANTI- BONE MARROW METASTASIS AGENT [Concomitant]
  3. CASODEX [Suspect]
     Active Substance: BICALUTAMIDE
     Indication: METASTASIS
     Route: 048
  4. ZOLADEX [Suspect]
     Active Substance: GOSERELIN ACETATE
     Indication: PROSTATE CANCER
     Route: 058
     Dates: start: 201405
  5. CASODEX [Suspect]
     Active Substance: BICALUTAMIDE
     Indication: PROSTATE CANCER
     Route: 048
  6. ZOLEDRONIC ACID [Concomitant]
     Active Substance: ZOLEDRONIC ACID
     Dosage: MONTHLY
     Route: 042
  7. CASODEX [Suspect]
     Active Substance: BICALUTAMIDE
     Indication: PROSTATE CANCER
     Route: 048
     Dates: start: 201405

REACTIONS (7)
  - Early satiety [Unknown]
  - Poor quality sleep [Recovered/Resolved]
  - Malignant neoplasm progression [Unknown]
  - Rash erythematous [Recovered/Resolved]
  - Off label use [Recovered/Resolved]
  - Breath odour [Unknown]
  - Adverse event [Unknown]

NARRATIVE: CASE EVENT DATE: 20140617
